FAERS Safety Report 8496017-0 (Version None)
Quarter: 2012Q3

REPORT INFORMATION
  Report Type: 
  Country: None (occurrence: None)
  Receive Date: 20120709
  Receipt Date: 20120702
  Transmission Date: 20120928
  Serious: Yes (Death, Hospitalization, Other)
  Sender: FDA-Public Use
  Company Number: US-PFIZER INC-2012158597

PATIENT
  Sex: Male
  Weight: 72.562 kg

DRUGS (3)
  1. EFFEXOR XR [Suspect]
     Indication: DEPRESSION
     Dosage: 225 MG, DAILY
     Route: 048
  2. EFFEXOR [Suspect]
     Indication: DEPRESSION
     Dosage: 75 MG, DAILY
     Route: 048
  3. PROZAC [Suspect]
     Indication: DEPRESSION
     Dosage: 20 MG, DAILY

REACTIONS (3)
  - DRUG INEFFECTIVE [None]
  - SUICIDAL IDEATION [None]
  - OVERDOSE [None]
